FAERS Safety Report 10094572 (Version 1)
Quarter: 2014Q2

REPORT INFORMATION
  Report Type: Spontaneous
  Country: US (occurrence: US)
  Receive Date: 20140422
  Receipt Date: 20140422
  Transmission Date: 20141212
  Serious: No
  Sender: FDA-Public Use
  Company Number: US-B.I. PHARMACEUTICALS,INC./RIDGEFIELD-2014-BI-16721BP

PATIENT
  Age: 71 Year
  Sex: Female
  Weight: 64 kg

DRUGS (9)
  1. SPIRIVA [Suspect]
     Indication: DYSPNOEA
     Dosage: 18 MCG
     Route: 055
     Dates: start: 2012
  2. KLOR-CON [Concomitant]
     Dosage: 40 MEQ
     Route: 048
  3. BABY ASPIRIN [Concomitant]
     Dosage: 81 MG
     Route: 050
  4. TRAMADOL [Concomitant]
     Indication: BACK PAIN
     Dosage: 200 MG
     Route: 048
  5. FUROSEMIDE [Concomitant]
     Indication: LOCAL SWELLING
     Dosage: 40 MG
     Route: 048
  6. CALCIUM WITH D [Concomitant]
     Dosage: 600 MG
     Route: 048
  7. LOVASTATIN [Concomitant]
     Indication: BLOOD CHOLESTEROL INCREASED
     Dosage: 20 MG
     Route: 048
  8. MELOXICAM [Concomitant]
     Indication: PAIN IN EXTREMITY
     Dosage: 15 MG
     Route: 048
  9. HYDROCODONE [Concomitant]
     Indication: BACK PAIN
     Dosage: DOSE PER APPLICATION: 5/325; DAILY DOSE: 5/325
     Route: 048

REACTIONS (6)
  - Dyspnoea [Not Recovered/Not Resolved]
  - Gait disturbance [Not Recovered/Not Resolved]
  - Blood urine present [Not Recovered/Not Resolved]
  - Product quality issue [Recovered/Resolved]
  - Product quality issue [Recovered/Resolved]
  - Product quality issue [Recovered/Resolved]
